FAERS Safety Report 8895286 (Version 2)
Quarter: 2012Q4

REPORT INFORMATION
  Report Type: 
  Country: AR (occurrence: AR)
  Receive Date: 20121107
  Receipt Date: 20121218
  Transmission Date: 20130627
  Serious: Yes (Other)
  Sender: FDA-Public Use
  Company Number: AR-VERTEX PHARMACEUTICAL INC.-2012-024166

PATIENT
  Age: 67 Year
  Sex: Female

DRUGS (3)
  1. INCIVO [Suspect]
     Indication: HEPATITIS C
     Dosage: Dosage Form: Tablet
     Route: 048
     Dates: start: 201210
  2. RIBAVIRIN [Concomitant]
     Dosage: Dosage Form: Unknown
     Route: 065
  3. PEG-INTERFERON [Concomitant]
     Dosage: Dosage Form: Unknown
     Route: 065

REACTIONS (2)
  - Syncope [Recovered/Resolved]
  - Anaemia [Recovered/Resolved]
